FAERS Safety Report 21357852 (Version 1)
Quarter: 2022Q3

REPORT INFORMATION
  Report Type: Spontaneous
  Country: CA (occurrence: CA)
  Receive Date: 20220921
  Receipt Date: 20220921
  Transmission Date: 20221027
  Serious: Yes (Hospitalization, Other)
  Sender: FDA-Public Use
  Company Number: CA-AMGEN-CANSP2022159700

PATIENT
  Age: 65 Year
  Sex: Female
  Weight: 54.422 kg

DRUGS (1)
  1. PROLIA [Suspect]
     Active Substance: DENOSUMAB
     Indication: Osteoporosis
     Dosage: UNK, Q6MO
     Route: 058

REACTIONS (4)
  - Atypical femur fracture [Recovering/Resolving]
  - Femur fracture [Recovering/Resolving]
  - Pelvic fracture [Recovering/Resolving]
  - Pain [Recovering/Resolving]
